FAERS Safety Report 20439529 (Version 1)
Quarter: 2022Q1

REPORT INFORMATION
  Report Type: Spontaneous
  Country: US (occurrence: None)
  Receive Date: 20220205
  Receipt Date: 20220205
  Transmission Date: 20220424
  Serious: Yes (Hospitalization)
  Sender: FDA-Public Use
  Company Number: None

PATIENT
  Age: 12 Year
  Sex: Male
  Weight: 57 kg

DRUGS (6)
  1. DAUNORUBICIN [Suspect]
     Active Substance: DAUNORUBICIN
     Dates: end: 20220128
  2. PREDNISOLONE [Suspect]
     Active Substance: PREDNISOLONE
     Dates: end: 20220202
  3. ONCASPAR [Suspect]
     Active Substance: PEGASPARGASE
     Dates: end: 20220124
  4. VINCRISTINE SULFATE [Suspect]
     Active Substance: VINCRISTINE SULFATE
     Dates: end: 20220128
  5. CYTARABINE [Suspect]
     Active Substance: CYTARABINE
     Dates: end: 20220201
  6. METHOTREXATE [Suspect]
     Active Substance: METHOTREXATE
     Dates: end: 20220128

REACTIONS (6)
  - Hypotension [None]
  - Tachycardia [None]
  - Lactic acidosis [None]
  - Abdominal pain [None]
  - Dizziness [None]
  - Lethargy [None]

NARRATIVE: CASE EVENT DATE: 20220202
